FAERS Safety Report 8093427-0 (Version None)
Quarter: 2012Q1

REPORT INFORMATION
  Report Type: 
  Country: None (occurrence: None)
  Receive Date: 20120128
  Receipt Date: 20110901
  Transmission Date: 20120608
  Serious: No
  Sender: FDA-Public Use
  Company Number: US-ABBOTT-11P-163-0851013-00

PATIENT
  Age: 40 Year
  Sex: Female

DRUGS (7)
  1. HUMIRA [Suspect]
     Indication: CROHN'S DISEASE
     Dosage: LOADING DOSE
     Dates: start: 20110831, end: 20110831
  2. ZEGERID [Concomitant]
     Indication: DYSPEPSIA
  3. NORCO [Concomitant]
     Indication: PAIN
     Dosage: 10/25 PRN
  4. HUMIRA [Suspect]
  5. LIALDA [Concomitant]
     Indication: CROHN'S DISEASE
  6. AMLODIPINE BESYLATE AND BENAZEPRIL HCL [Concomitant]
     Indication: HYPERTENSION
     Dosage: 5/10MG
  7. XANAX [Concomitant]
     Indication: ANXIETY
     Dosage: PRN

REACTIONS (4)
  - INJECTION SITE REACTION [None]
  - INJECTION SITE NODULE [None]
  - INJECTION SITE ERYTHEMA [None]
  - INJECTION SITE PAIN [None]
